FAERS Safety Report 4768916-4 (Version None)
Quarter: 2005Q3

REPORT INFORMATION
  Report Type: 
  Country: None (occurrence: None)
  Receive Date: 20050913
  Receipt Date: 20050905
  Transmission Date: 20060218
  Serious: Yes (Hospitalization)
  Sender: FDA-Public Use
  Company Number: 2005123684

PATIENT
  Age: 66 Year
  Sex: Male
  Weight: 104 kg

DRUGS (9)
  1. ZYVOXID TABLET (LINEZOLID) [Suspect]
     Indication: OSTEOMYELITIS
     Dosage: 1200 MG (600 MG, TWICE A DAY), ORAL
     Route: 048
     Dates: start: 20050701, end: 20050723
  2. AUGMENTIN '125' [Concomitant]
  3. ASPIRIN [Concomitant]
  4. ZESTRIL [Concomitant]
  5. CARVEDILOL [Concomitant]
  6. SELIPRAN (PRAVASTATIN SODIUM) [Concomitant]
  7. LASIX [Concomitant]
  8. INSULATARD HM (INSULIN HUMAN INJECTION, ISOPHANE) [Concomitant]
  9. NOVORAPID (INSULIN ASPART) [Concomitant]

REACTIONS (7)
  - BLOOD POTASSIUM INCREASED [None]
  - BRADYCARDIA [None]
  - HYPERKALAEMIA [None]
  - HYPOTONIA [None]
  - LACTIC ACIDOSIS [None]
  - RENAL FAILURE ACUTE [None]
  - VOMITING [None]
